FAERS Safety Report 10014251 (Version 2)
Quarter: 2014Q1

REPORT INFORMATION
  Report Type: Spontaneous
  Country: FR (occurrence: FR)
  Receive Date: 20140317
  Receipt Date: 20140331
  Transmission Date: 20141002
  Serious: Yes (Hospitalization, Other)
  Sender: FDA-Public Use
  Company Number: FR-JNJFOC-20140309055

PATIENT
  Age: 46 Year
  Sex: Female

DRUGS (1)
  1. IXPRIM [Suspect]
     Indication: ABDOMINAL PAIN
     Route: 048
     Dates: start: 20140207, end: 20140207

REACTIONS (3)
  - Hepatocellular injury [Recovered/Resolved]
  - Accidental overdose [Recovered/Resolved]
  - Medication error [Recovered/Resolved]
